FAERS Safety Report 6934674-8 (Version None)
Quarter: 2010Q3

REPORT INFORMATION
  Report Type: 
  Country: None (occurrence: None)
  Receive Date: 20100820
  Receipt Date: 20100806
  Transmission Date: 20110219
  Serious: Yes (Hospitalization)
  Sender: FDA-Public Use
  Company Number: JP-GENENTECH-305508

PATIENT
  Sex: Male

DRUGS (3)
  1. RANIBIZUMAB [Suspect]
     Indication: MACULAR DEGENERATION
     Dosage: 0.05 ML, UNKNOWN
     Route: 031
     Dates: start: 20090508, end: 20090713
  2. VISUDYNE [Concomitant]
     Indication: PRODUCT USED FOR UNKNOWN INDICATION
     Dosage: UNK
     Dates: start: 20090511
  3. LEVOFLOXACIN [Concomitant]
     Indication: PRODUCT USED FOR UNKNOWN INDICATION
     Dosage: UNK
     Dates: start: 20090501, end: 20090701

REACTIONS (1)
  - DECREASED APPETITE [None]
